FAERS Safety Report 10207116 (Version 3)
Quarter: 2015Q1

REPORT INFORMATION
  Report Type: Spontaneous
  Country: US (occurrence: US)
  Receive Date: 20140530
  Receipt Date: 20150212
  Transmission Date: 20150720
  Serious: No
  Sender: FDA-Public Use
  Company Number: US-GLAXOSMITHKLINE-A1000343A

PATIENT

DRUGS (10)
  1. VENTOLIN [Suspect]
     Active Substance: ALBUTEROL SULFATE
     Dates: start: 201012
  2. VENTOLIN [Suspect]
     Active Substance: ALBUTEROL SULFATE
     Dates: start: 201012
  3. VENTOLIN [Suspect]
     Active Substance: ALBUTEROL SULFATE
     Dates: start: 201012
  4. RHINOCORT [Concomitant]
     Active Substance: BUDESONIDE
  5. VENTOLIN [Suspect]
     Active Substance: ALBUTEROL SULFATE
     Indication: CHRONIC OBSTRUCTIVE PULMONARY DISEASE
     Dates: start: 201012
  6. VITAMIN C [Concomitant]
     Active Substance: ASCORBIC ACID
  7. ASMANEX [Concomitant]
     Active Substance: MOMETASONE FUROATE
  8. VENTOLIN [Suspect]
     Active Substance: ALBUTEROL SULFATE
     Indication: ASTHMA
     Dosage: 90 MCG, 1 SPRAY AS REQUIRED1 PUFF FOUR TIMES PER DAY
     Route: 055
     Dates: start: 201012
  9. ADVAIR DISKUS [Suspect]
     Active Substance: FLUTICASONE PROPIONATE\SALMETEROL XINAFOATE
     Indication: ASTHMA
     Route: 055
     Dates: start: 2008, end: 2008
  10. COD LIVER OIL [Concomitant]
     Active Substance: COD LIVER OIL

REACTIONS (7)
  - Drug ineffective [Not Recovered/Not Resolved]
  - Therapeutic response unexpected [Not Recovered/Not Resolved]
  - Therapeutic response decreased [Not Recovered/Not Resolved]
  - Condition aggravated [Not Recovered/Not Resolved]
  - Product quality issue [Not Recovered/Not Resolved]
  - Incorrect product storage [Unknown]
  - Drug administration error [Unknown]

NARRATIVE: CASE EVENT DATE: 2012
